FAERS Safety Report 15653658 (Version 1)
Quarter: 2018Q4

REPORT INFORMATION
  Report Type: Spontaneous
  Country: US (occurrence: US)
  Receive Date: 20181122
  Receipt Date: 20181122
  Transmission Date: 20190205
  Serious: Yes (Disabling)
  Sender: FDA-Public Use
  Company Number: None

PATIENT
  Age: 34 Year
  Sex: Male
  Weight: 69.75 kg

DRUGS (2)
  1. OMNIPAQUE [Suspect]
     Active Substance: IOHEXOL
     Indication: NUCLEAR MAGNETIC RESONANCE IMAGING
     Dosage: ?          QUANTITY:13 INJECTION(S);OTHER FREQUENCY:ONCE;OTHER ROUTE:INTO THE LEFT HIP JOINT?
     Dates: start: 20150710, end: 20150710
  2. DILUTE GADOLINIUM CONTRAST SOLUTION [Suspect]
     Active Substance: GADOLINIUM

REACTIONS (2)
  - Adverse event [None]
  - Emotional distress [None]

NARRATIVE: CASE EVENT DATE: 20150710
